FAERS Safety Report 7206385-5 (Version None)
Quarter: 2011Q1

REPORT INFORMATION
  Report Type: 
  Country: None (occurrence: None)
  Receive Date: 20110103
  Receipt Date: 20110103
  Transmission Date: 20110831
  Serious: Yes (Other)
  Sender: FDA-Public Use
  Company Number: PHHO2007DE13746

PATIENT
  Sex: Female
  Weight: 60 kg

DRUGS (5)
  1. LEVOTHYROXINE SODIUM [Concomitant]
  2. VALETTE [Concomitant]
  3. DIOVAN [Suspect]
     Indication: HYPERTENSION
     Dosage: 40 MG / D
     Dates: start: 20070609
  4. CERTICAN [Suspect]
     Indication: CONGENITAL CYSTIC KIDNEY DISEASE
     Dosage: UNK
     Route: 048
     Dates: start: 20070720, end: 20070818
  5. CERTICAN [Suspect]
     Dosage: REDUCED DOSE
     Route: 048

REACTIONS (4)
  - ANAEMIA [None]
  - ASTHENIA [None]
  - HAEMATOCRIT DECREASED [None]
  - BLOOD CREATININE INCREASED [None]
